FAERS Safety Report 5518708-3 (Version None)
Quarter: 2007Q4

REPORT INFORMATION
  Report Type: 
  Country: None (occurrence: None)
  Receive Date: 20071113
  Receipt Date: 20071106
  Transmission Date: 20080405
  Serious: Yes (Death)
  Sender: FDA-Public Use
  Company Number: 2007-03697

PATIENT
  Age: 62 Year
  Sex: Male

DRUGS (6)
  1. VELCADE [Suspect]
     Indication: PERIPHERAL T-CELL LYMPHOMA UNSPECIFIED
     Dosage: 3.00 MG, INTRAVENOUS
     Route: 042
     Dates: start: 20060623, end: 20070717
  2. METHYLPREDNISOLONE [Suspect]
     Indication: PERIPHERAL T-CELL LYMPHOMA UNSPECIFIED
     Dosage: 120.00, INTRAVENOUS
     Route: 042
     Dates: start: 20060623, end: 20060717
  3. CYCLOPHOSPHAMIDE [Suspect]
     Indication: PERIPHERAL T-CELL LYMPHOMA UNSPECIFIED
     Dosage: 2400.00 MG, INTRAVENOUS
     Route: 042
     Dates: start: 20060623, end: 20060623
  4. DOXORUBICIN HCL [Suspect]
     Indication: PERIPHERAL T-CELL LYMPHOMA UNSPECIFIED
     Dosage: 150.00 MG,  INTRAVENOUS
     Route: 042
     Dates: start: 20060623, end: 20060713
  5. VINDESINE SULFATE(VINDESINE SULFATE) [Suspect]
     Indication: PERIPHERAL T-CELL LYMPHOMA UNSPECIFIED
     Dosage: 4.00 MG, INTRAVENOUS
     Route: 042
     Dates: start: 20060623, end: 20060717
  6. BLEOMYCIN SULFATE [Suspect]
     Indication: PERIPHERAL T-CELL LYMPHOMA UNSPECIFIED
     Dosage: 10.00 IU, INTRAVENOUS
     Route: 042
     Dates: start: 20060623, end: 20060717

REACTIONS (1)
  - DISEASE PROGRESSION [None]
